FAERS Safety Report 4320045-X (Version None)
Quarter: 2004Q1

REPORT INFORMATION
  Report Type: 
  Country: None (occurrence: None)
  Receive Date: 20040316
  Receipt Date: 20020729
  Transmission Date: 20041129
  Serious: Yes (Hospitalization)
  Sender: FDA-Public Use
  Company Number: KII-2002-0007974

PATIENT
  Sex: Male

DRUGS (2)
  1. OXYCONTIN [Suspect]
     Dosage: 400 MG, Q12H, UNKNOWN
     Route: 065
  2. COCAINE (COCAINE) [Suspect]
     Dosage: UNK
     Route: 065

REACTIONS (3)
  - DRUG WITHDRAWAL SYNDROME [None]
  - RIB FRACTURE [None]
  - ROAD TRAFFIC ACCIDENT [None]
